FAERS Safety Report 6250905-4 (Version None)
Quarter: 2009Q2

REPORT INFORMATION
  Report Type: 
  Country: None (occurrence: None)
  Receive Date: 20090630
  Receipt Date: 20090624
  Transmission Date: 20091009
  Serious: Yes (Other)
  Sender: FDA-Public Use
  Company Number: FR-WYE-H09928109

PATIENT
  Age: 80 Year
  Sex: Male

DRUGS (1)
  1. CORDARONE [Suspect]
     Route: 048
     Dates: start: 20060101, end: 20081101

REACTIONS (4)
  - DIZZINESS [None]
  - FORMICATION [None]
  - HYPERTENSION [None]
  - HYPERTHYROIDISM [None]
